FAERS Safety Report 22351514 (Version 1)
Quarter: 2023Q2

REPORT INFORMATION
  Report Type: Spontaneous
  Country: US (occurrence: US)
  Receive Date: 20230522
  Receipt Date: 20230522
  Transmission Date: 20230721
  Serious: Yes (Hospitalization)
  Sender: FDA-Public Use
  Company Number: US-MYLANLABS-2023M1052341

PATIENT
  Age: 27 Year
  Sex: Male

DRUGS (1)
  1. ACETAMINOPHEN [Suspect]
     Active Substance: ACETAMINOPHEN
     Indication: Product used for unknown indication
     Dosage: 35 GRAM
     Route: 048

REACTIONS (8)
  - Methaemoglobinaemia [Recovered/Resolved]
  - Acute kidney injury [Recovered/Resolved]
  - Haemolysis [Recovered/Resolved]
  - Haemolytic anaemia [Recovered/Resolved]
  - Hepatic failure [Recovered/Resolved]
  - Suicide attempt [Recovered/Resolved]
  - Intentional overdose [Recovered/Resolved]
  - Toxicity to various agents [Recovered/Resolved]
